FAERS Safety Report 9116590 (Version 1)
Quarter: 2013Q1

REPORT INFORMATION
  Report Type: Spontaneous
  Country: GB (occurrence: GB)
  Receive Date: 20130225
  Receipt Date: 20130225
  Transmission Date: 20140127
  Serious: Yes (Hospitalization)
  Sender: FDA-Public Use
  Company Number: PHHY2013GB016240

PATIENT
  Age: 62 Year
  Sex: Male

DRUGS (8)
  1. LOSARTAN [Suspect]
     Indication: HYPERTENSION
     Dosage: 50 MG
     Dates: start: 201206, end: 20130120
  2. SIMVASTATIN [Concomitant]
     Dosage: 20 MG
  3. THYROXINE [Concomitant]
     Dosage: 50 UG, UNK
  4. LAMOTRIGINE [Concomitant]
     Dosage: 100 MG
  5. DULOXETINE [Concomitant]
     Dosage: 60 MG
  6. QUETIAPINE [Concomitant]
     Dosage: 75 MG
  7. LITHIUM [Concomitant]
     Dates: end: 201210
  8. DOXAZOSIN [Concomitant]

REACTIONS (3)
  - Drug prescribing error [Unknown]
  - Back pain [Not Recovered/Not Resolved]
  - Renal impairment [Not Recovered/Not Resolved]
